FAERS Safety Report 4448326-X (Version None)
Quarter: 2004Q3

REPORT INFORMATION
  Report Type: 
  Country: None (occurrence: None)
  Receive Date: 20040913
  Receipt Date: 20040825
  Transmission Date: 20050211
  Serious: Yes (Hospitalization)
  Sender: FDA-Public Use
  Company Number: 2004-0007403

PATIENT
  Age: 35 Year
  Sex: Male
  Weight: 65 kg

DRUGS (8)
  1. TENOFOVIR DISOPROXIL FUMARATE (TENOFOVIR DISOPROXIL FUMARATE) [Suspect]
     Indication: HIV INFECTION
     Dosage: 300 MG, 1 IN 1 D, ORAL
     Route: 048
     Dates: start: 20040309
  2. SAQUINAVIR (SAQYUINAVIR) [Suspect]
     Indication: HIV INFECTION
     Dates: start: 20040309
  3. 3TC (LAMIVUDINE) [Concomitant]
  4. RTV (RITONAVIR) [Concomitant]
  5. .... [Concomitant]
  6. .... [Concomitant]
  7. ... [Concomitant]
  8. ... [Concomitant]

REACTIONS (2)
  - FAECALOMA [None]
  - GASTROINTESTINAL OBSTRUCTION [None]
